FAERS Safety Report 7676623-3 (Version None)
Quarter: 2011Q3

REPORT INFORMATION
  Report Type: 
  Country: None (occurrence: None)
  Receive Date: 20110805
  Receipt Date: 20110721
  Transmission Date: 20111222
  Serious: Yes (Hospitalization, Other)
  Sender: FDA-Public Use
  Company Number: 2011MA009252

PATIENT
  Age: 18 Year
  Sex: Male

DRUGS (1)
  1. FEVERALL [Suspect]
     Indication: INTENTIONAL OVERDOSE
     Dosage: 24375 MG;1X

REACTIONS (12)
  - LUNG INFILTRATION [None]
  - VOMITING [None]
  - JAUNDICE [None]
  - PROTHROMBIN TIME PROLONGED [None]
  - HEPATIC FAILURE [None]
  - PLEURAL EFFUSION [None]
  - INTERNATIONAL NORMALISED RATIO INCREASED [None]
  - PYREXIA [None]
  - TACHYPNOEA [None]
  - ASCITES [None]
  - HYPERGLYCAEMIA [None]
  - INTENTIONAL OVERDOSE [None]
